FAERS Safety Report 9108259 (Version 4)
Quarter: 2013Q3

REPORT INFORMATION
  Report Type: Report from Study
  Country: US (occurrence: US)
  Receive Date: 20130222
  Receipt Date: 20130902
  Transmission Date: 20140515
  Serious: Yes (Hospitalization)
  Sender: FDA-Public Use
  Company Number: US-009507513-1302USA007414

PATIENT
  Age: 77 Year
  Sex: Female
  Weight: 50.52 kg

DRUGS (22)
  1. MOMETASONE FUROATE (+) FORMOTEROL FUMARATE [Suspect]
     Indication: ASTHMA
     Dosage: 400/10, BID, 2 INHALATIONS
     Route: 055
     Dates: start: 20120328, end: 20120501
  2. CIPRO [Concomitant]
     Indication: SPUTUM DISCOLOURED
     Dosage: 1000 MG, BID
     Route: 048
     Dates: start: 20120827, end: 20120918
  3. CIPRO [Concomitant]
     Dosage: 500 MG, UNK
     Route: 048
  4. PREDNISONE [Concomitant]
     Indication: ASTHMA
     Dosage: 40 MG, BID
     Route: 048
     Dates: start: 20120911, end: 20120915
  5. PREDNISONE [Concomitant]
     Dosage: 20 MG, BID
     Route: 048
     Dates: start: 20120916, end: 20120918
  6. PREDNISONE [Concomitant]
     Dosage: 10 MG, QD
     Route: 048
     Dates: start: 20120919, end: 20120921
  7. PREDNISONE [Concomitant]
     Dosage: 5 MG, QD
     Route: 048
     Dates: start: 20120922, end: 20120924
  8. SYNTHROID [Concomitant]
     Indication: HYPOTHYROIDISM
     Dosage: 112 MICROGRAM, QD
     Route: 048
     Dates: start: 20120803
  9. DULERA [Concomitant]
     Indication: ASTHMA
     Dosage: 800 MICROGRAM, BID
     Route: 055
     Dates: start: 20120501
  10. FLONASE [Concomitant]
     Indication: RHINITIS ALLERGIC
     Dosage: 100 MICROGRAM, PRN
     Route: 055
     Dates: start: 20060906
  11. KENALOG [Concomitant]
     Indication: ECZEMA
     Dosage: 1 APPLICATION, PRN
     Route: 061
     Dates: start: 20061213
  12. VITAMINS (UNSPECIFIED) [Concomitant]
     Indication: VITAMIN SUPPLEMENTATION
     Dosage: 1 DF, QD
     Route: 048
     Dates: start: 199811
  13. PATADAY [Concomitant]
     Indication: CONJUNCTIVITIS ALLERGIC
     Dosage: 1.6/8 QTTS, BID
     Route: 047
     Dates: start: 20120321
  14. FOSAMAX [Concomitant]
     Indication: OSTEOPOROSIS
     Dosage: 70 MG, QW
     Route: 048
     Dates: start: 20120226
  15. FOSAMAX [Concomitant]
     Indication: OSTEOPENIA
  16. DILTIAZEM HYDROCHLORIDE [Concomitant]
     Indication: PALPITATIONS
     Dosage: 360 MG, BID
     Route: 048
     Dates: start: 20110119
  17. DILTIAZEM HYDROCHLORIDE [Concomitant]
     Indication: SUPRAVENTRICULAR TACHYCARDIA
  18. DILTIAZEM HYDROCHLORIDE [Concomitant]
     Indication: SINUS TACHYCARDIA
  19. PRAVACHOL [Concomitant]
     Indication: HYPERCHOLESTEROLAEMIA
     Dosage: 80 MG, QD
     Route: 048
     Dates: start: 20071214
  20. PROAIR (FLUTICASONE PROPIONATE) [Concomitant]
  21. LEVAQUIN [Concomitant]
     Dosage: 500 MG, QD
     Route: 048
  22. TOBRAMYCIN [Concomitant]
     Dosage: 300 MG, BID
     Route: 055

REACTIONS (1)
  - Pneumonia pseudomonal [Not Recovered/Not Resolved]
